FAERS Safety Report 22091876 (Version 5)
Quarter: 2023Q2

REPORT INFORMATION
  Report Type: Report from Study
  Country: NL (occurrence: NL)
  Receive Date: 20230314
  Receipt Date: 20230616
  Transmission Date: 20230722
  Serious: Yes (Hospitalization)
  Sender: FDA-Public Use
  Company Number: NL-002147023-NVSC2023NL054437

PATIENT
  Age: 65 Year
  Sex: Female
  Weight: 57.1 kg

DRUGS (10)
  1. RINETERKIB [Suspect]
     Active Substance: RINETERKIB
     Indication: Colorectal cancer
     Dosage: 100 MG, QD
     Route: 048
     Dates: start: 20221026, end: 20230308
  2. DABRAFENIB [Suspect]
     Active Substance: DABRAFENIB
     Indication: Colorectal cancer
     Dosage: 150 MG, BID
     Route: 048
     Dates: start: 20221026, end: 20230308
  3. TISLELIZUMAB [Suspect]
     Active Substance: TISLELIZUMAB
     Indication: Colorectal cancer
     Dosage: 300 MG, OTHER (EVERY 4 WEEKS)
     Route: 042
     Dates: start: 20221026, end: 20230301
  4. VASELINE CETOMACROGOL CREAM [Concomitant]
     Indication: Colorectal cancer
     Dosage: UNK
     Route: 065
     Dates: start: 20221017
  5. ACETAMINOPHEN [Concomitant]
     Active Substance: ACETAMINOPHEN
     Indication: Colorectal cancer
     Dosage: UNK
     Route: 065
     Dates: start: 20221017, end: 20230309
  6. ACETAMINOPHEN [Concomitant]
     Active Substance: ACETAMINOPHEN
     Indication: Premedication
     Dosage: UNK
     Route: 065
     Dates: start: 20221221, end: 20230605
  7. POLYETHYLENE GLYCOLS [Concomitant]
     Active Substance: POLYETHYLENE GLYCOLS
     Indication: Constipation prophylaxis
     Dosage: UNK
     Route: 065
     Dates: start: 20221026, end: 20230329
  8. POLYETHYLENE GLYCOLS [Concomitant]
     Active Substance: POLYETHYLENE GLYCOLS
     Indication: Constipation
  9. CLEMASTINE [Concomitant]
     Active Substance: CLEMASTINE
     Indication: Colorectal cancer
     Dosage: UNK
     Route: 065
     Dates: start: 20221221, end: 20230605
  10. FERRIC CARBOXYMALTOSE [Concomitant]
     Active Substance: FERRIC CARBOXYMALTOSE
     Indication: Anaemia
     Dosage: UNK
     Route: 065
     Dates: start: 20230301, end: 20230301

REACTIONS (1)
  - Pancreatitis [Recovered/Resolved]

NARRATIVE: CASE EVENT DATE: 20230308
